FAERS Safety Report 23852877 (Version 1)
Quarter: 2024Q2

REPORT INFORMATION
  Report Type: Spontaneous
  Country: CN (occurrence: CN)
  Receive Date: 20240514
  Receipt Date: 20240514
  Transmission Date: 20240715
  Serious: Yes (Life-Threatening)
  Sender: FDA-Public Use
  Company Number: CN-BAYER-2024A070559

PATIENT
  Age: 48 Year
  Sex: Female
  Weight: 75 kg

DRUGS (1)
  1. ULTRAVIST [Suspect]
     Active Substance: IOPROMIDE
     Indication: Scan thyroid gland
     Dosage: 30 G, ONCE
     Route: 042
     Dates: start: 20240430, end: 20240430

REACTIONS (6)
  - Anaphylactic shock [Recovering/Resolving]
  - Contrast media allergy [Recovering/Resolving]
  - Loss of consciousness [Recovered/Resolved]
  - Blood pressure decreased [Recovered/Resolved]
  - Urinary incontinence [None]
  - Respiratory rate increased [None]

NARRATIVE: CASE EVENT DATE: 20240430
